FAERS Safety Report 9476831 (Version 1)
Quarter: 2013Q3

REPORT INFORMATION
  Report Type: Spontaneous
  Country: US (occurrence: US)
  Receive Date: 20130826
  Receipt Date: 20130826
  Transmission Date: 20140515
  Serious: No
  Sender: FDA-Public Use
  Company Number: US-TARO-2012P1053281

PATIENT
  Age: 66 Year
  Sex: Male

DRUGS (8)
  1. CLOBETASOL PROPIONATE [Suspect]
     Indication: TRANSIENT ACANTHOLYTIC DERMATOSIS
     Route: 061
     Dates: start: 2011, end: 201207
  2. CLOBETASOL PROPIONATE [Suspect]
     Route: 061
     Dates: start: 2011, end: 201207
  3. CLOBETASOL PROPIONATE CREAM [Suspect]
     Indication: TRANSIENT ACANTHOLYTIC DERMATOSIS
     Route: 061
     Dates: start: 201207
  4. CLOBETASOL PROPIONATE CREAM [Suspect]
     Route: 061
     Dates: start: 201207
  5. PROTONIX [Concomitant]
  6. ALLERGY MEDICATIONS [Concomitant]
  7. NASONEX [Concomitant]
  8. ZYRTEC [Concomitant]

REACTIONS (1)
  - Blood pressure increased [Not Recovered/Not Resolved]
